FAERS Safety Report 4796400-0 (Version None)
Quarter: 2005Q4

REPORT INFORMATION
  Report Type: 
  Country: None (occurrence: None)
  Receive Date: 20051007
  Receipt Date: 20050928
  Transmission Date: 20060501
  Serious: Yes (Other)
  Sender: FDA-Public Use
  Company Number: 2005134829

PATIENT
  Age: 44 Year
  Sex: Female
  Weight: 75 kg

DRUGS (1)
  1. PSEUDOEPHEDRINE HCL [Suspect]
     Indication: NASAL CONGESTION
     Dosage: ORAL
     Route: 048
     Dates: start: 20050811, end: 20050811

REACTIONS (2)
  - ERYTHEMA [None]
  - RASH MACULAR [None]
